FAERS Safety Report 6014841-0 (Version None)
Quarter: 2008Q4

REPORT INFORMATION
  Report Type: 
  Country: None (occurrence: None)
  Receive Date: 20081219
  Receipt Date: 20081208
  Transmission Date: 20090506
  Serious: Yes (Other)
  Sender: FDA-Public Use
  Company Number: BR-PFIZER INC-2008153971

PATIENT

DRUGS (5)
  1. FRONTAL [Suspect]
     Indication: ANXIETY
     Dosage: UNK
     Route: 048
     Dates: start: 20000101
  2. ATENOLOL [Concomitant]
     Dosage: UNK
     Route: 065
  3. LEXAPRO [Concomitant]
     Dosage: UNK
     Route: 065
  4. BUSPIRONE [Concomitant]
     Dosage: UNK
     Route: 065
  5. TRAZODONE HYDROCHLORIDE [Concomitant]
     Dosage: UNK
     Route: 065

REACTIONS (2)
  - DEPENDENCE [None]
  - OSTEOMYELITIS [None]
